FAERS Safety Report 15674504 (Version 2)
Quarter: 2018Q4

REPORT INFORMATION
  Report Type: Spontaneous
  Country: US (occurrence: US)
  Receive Date: 20181130
  Receipt Date: 20181205
  Transmission Date: 20190205
  Serious: Yes (Other)
  Sender: FDA-Public Use
  Company Number: US-ROCHE-2222391

PATIENT
  Age: 44 Year
  Sex: Female

DRUGS (3)
  1. OCREVUS [Suspect]
     Active Substance: OCRELIZUMAB
     Indication: RELAPSING MULTIPLE SCLEROSIS
     Route: 065
  2. OCREVUS [Suspect]
     Active Substance: OCRELIZUMAB
     Dosage: HALF-DOSE
     Route: 065
     Dates: start: 201801
  3. OCREVUS [Suspect]
     Active Substance: OCRELIZUMAB
     Dosage: HALF-DOSE
     Route: 065
     Dates: start: 201807

REACTIONS (1)
  - Invasive ductal breast carcinoma [Not Recovered/Not Resolved]
